FAERS Safety Report 4610899-1 (Version None)
Quarter: 2005Q2

REPORT INFORMATION
  Report Type: 
  Country: None (occurrence: None)
  Receive Date: 20050301
  Receipt Date: 20040708
  Transmission Date: 20051028
  Serious: Yes (Other)
  Sender: FDA-Public Use
  Company Number: 139517USA

PATIENT
  Age: 18 Year
  Sex: Female
  Weight: 40.8237 kg

DRUGS (4)
  1. AMOXICILLIN [Suspect]
     Indication: EAR PAIN
     Dosage: 500 MILLIGRAM TID ORAL
     Route: 048
     Dates: start: 20040629, end: 20040702
  2. AMOXICILLIN [Suspect]
     Indication: PHARYNGOLARYNGEAL PAIN
     Dosage: 500 MILLIGRAM TID ORAL
     Route: 048
     Dates: start: 20040629, end: 20040702
  3. FOLIC ACID [Concomitant]
  4. EFFEXOR [Concomitant]

REACTIONS (9)
  - ASTHENIA [None]
  - COUGH [None]
  - DIZZINESS [None]
  - FATIGUE [None]
  - HAEMOGLOBIN DECREASED [None]
  - HEADACHE [None]
  - JAUNDICE [None]
  - MIDDLE EAR EFFUSION [None]
  - RHINORRHOEA [None]
